FAERS Safety Report 9642490 (Version 3)
Quarter: 2013Q4

REPORT INFORMATION
  Report Type: Spontaneous
  Country: JP (occurrence: JP)
  Receive Date: 20131024
  Receipt Date: 20131204
  Transmission Date: 20140711
  Serious: Yes (Other)
  Sender: FDA-Public Use
  Company Number: JP-ASTRAZENECA-2013SE77021

PATIENT
  Age: 26914 Day
  Sex: Female

DRUGS (3)
  1. NEXIUM [Suspect]
     Indication: GASTROOESOPHAGEAL REFLUX DISEASE
     Route: 048
     Dates: start: 20121121, end: 20130806
  2. NEXIUM [Suspect]
     Indication: GASTROOESOPHAGEAL REFLUX DISEASE
     Route: 048
     Dates: start: 20130807
  3. MAALOX [Suspect]
     Indication: GASTROINTESTINAL DISORDER
     Route: 065
     Dates: start: 20121121

REACTIONS (3)
  - Syncope [Recovered/Resolved]
  - Myocardial ischaemia [Unknown]
  - Road traffic accident [Unknown]
